FAERS Safety Report 6395248-3 (Version None)
Quarter: 2009Q4

REPORT INFORMATION
  Report Type: 
  Country: None (occurrence: None)
  Receive Date: 20091009
  Receipt Date: 20091002
  Transmission Date: 20100525
  Serious: Yes (Other)
  Sender: FDA-Public Use
  Company Number: US-JNJFOC-20091001941

PATIENT
  Age: 40 Year
  Sex: Female
  Weight: 61.24 kg

DRUGS (4)
  1. MONISTAT 1 COMBINATION PACK [Suspect]
     Route: 067
     Dates: start: 20090929, end: 20090929
  2. MONISTAT 1 COMBINATION PACK [Suspect]
     Indication: FUNGAL INFECTION
     Route: 067
     Dates: start: 20090929, end: 20090929
  3. MONISTAT 1 COMBINATION PACK [Suspect]
     Route: 061
     Dates: start: 20090929, end: 20091001
  4. MONISTAT 1 COMBINATION PACK [Suspect]
     Route: 061
     Dates: start: 20090929, end: 20091001

REACTIONS (2)
  - APPLICATION SITE BURN [None]
  - OEDEMA GENITAL [None]
